FAERS Safety Report 8915937 (Version 2)
Quarter: 2013Q1

REPORT INFORMATION
  Report Type: Spontaneous
  Country: US (occurrence: US)
  Receive Date: 20121119
  Receipt Date: 20130123
  Transmission Date: 20140127
  Serious: No
  Sender: FDA-Public Use
  Company Number: US-PFIZER INC-2012285191

PATIENT
  Age: 62 Year
  Sex: Female

DRUGS (3)
  1. CLINDAMYCIN HYDROCHLORIDE [Suspect]
     Dosage: 300 MG, 3X/DAY
     Route: 048
     Dates: start: 201211
  2. METRONIDAZOLE [Concomitant]
     Dosage: 500 MG, 3X/DAY
  3. PERCOCET [Concomitant]
     Dosage: 10/325 Q 6H PRN

REACTIONS (3)
  - Tendon pain [Unknown]
  - Arthralgia [Unknown]
  - Back pain [Unknown]
